FAERS Safety Report 5016292-4 (Version None)
Quarter: 2006Q2

REPORT INFORMATION
  Report Type: 
  Country: None (occurrence: None)
  Receive Date: 20060414
  Receipt Date: 20060223
  Transmission Date: 20061013
  Serious: No
  Sender: FDA-Public Use
  Company Number: 2006SP000921

PATIENT
  Age: 44 Year
  Sex: Male
  Weight: 99.7913 kg

DRUGS (5)
  1. LUNESTA [Suspect]
     Indication: INSOMNIA
     Dosage: 2 MG; HS; ORAL
     Route: 048
     Dates: start: 20060221
  2. TYLENOL SINUS [Suspect]
     Indication: SINUS CONGESTION
     Dosage: 1X; ORAL
     Route: 048
     Dates: start: 20060222, end: 20060222
  3. IMURAN [Concomitant]
  4. PROZAC [Concomitant]
  5. LOMOTIL [Concomitant]

REACTIONS (2)
  - INSOMNIA [None]
  - SINUS CONGESTION [None]
